FAERS Safety Report 7813919-6 (Version None)
Quarter: 2011Q4

REPORT INFORMATION
  Report Type: 
  Country: None (occurrence: None)
  Receive Date: 20111011
  Receipt Date: 20111004
  Transmission Date: 20120403
  Serious: Yes (Hospitalization)
  Sender: FDA-Public Use
  Company Number: 2011SP047063

PATIENT
  Age: 27 Year
  Sex: Female
  Weight: 57 kg

DRUGS (1)
  1. DESOGESTREL AND ETHINYL ESTRADIOL [Suspect]
     Indication: CONTRACEPTION
     Dosage: QD.PO
     Route: 048
     Dates: start: 20110501, end: 20110921

REACTIONS (3)
  - BACTERIAL INFECTION [None]
  - PHARYNGITIS [None]
  - SKIN INFECTION [None]
